FAERS Safety Report 6585368-2 (Version None)
Quarter: 2010Q1

REPORT INFORMATION
  Report Type: 
  Country: None (occurrence: None)
  Receive Date: 20100201
  Receipt Date: 20090310
  Transmission Date: 20100710
  Serious: Yes (Life-Threatening, Other)
  Sender: FDA-Public Use
  Company Number: 8043741

PATIENT
  Age: 31 Year
  Sex: Male

DRUGS (3)
  1. KEPPRA [Suspect]
     Indication: CONVULSION
     Dosage: 250 MG BID ORAL ; 1000 MG, DOSE FREQ.: DAILY ORAL
     Route: 048
     Dates: start: 20080613, end: 20080630
  2. KEPPRA [Suspect]
     Indication: CONVULSION
     Dosage: 250 MG BID ORAL ; 1000 MG, DOSE FREQ.: DAILY ORAL
     Route: 048
     Dates: start: 20080630, end: 20090217
  3. KEPPRA [Suspect]
     Indication: CONVULSION
     Dosage: 1000 MG, DOSE FREQ.: DAILY ORAL
     Route: 048
     Dates: start: 20090218, end: 20090227

REACTIONS (2)
  - SUICIDAL IDEATION [None]
  - SUICIDE ATTEMPT [None]
